FAERS Safety Report 20991407 (Version 3)
Quarter: 2022Q4

REPORT INFORMATION
  Report Type: Spontaneous
  Country: CN (occurrence: None)
  Receive Date: 20220622
  Receipt Date: 20221102
  Transmission Date: 20230112
  Serious: Yes (Other)
  Sender: FDA-Public Use
  Company Number: CN-ROCHE-3120914

PATIENT
  Age: 74 Year
  Sex: Female

DRUGS (39)
  1. RITUXIMAB [Suspect]
     Active Substance: RITUXIMAB
     Indication: Follicular lymphoma
     Dosage: R-CHOP FOR 6 CYCLES
     Route: 065
     Dates: start: 201807
  2. RITUXIMAB [Suspect]
     Active Substance: RITUXIMAB
     Dosage: R2-CHOP FOR 6 CYCLES
     Route: 065
     Dates: start: 201909
  3. RITUXIMAB [Suspect]
     Active Substance: RITUXIMAB
     Dosage: BR FOR 3 CYCLES
     Route: 065
  4. RITUXIMAB [Suspect]
     Active Substance: RITUXIMAB
     Dosage: R-GEMOX FOR 4 CYCLES
     Route: 065
     Dates: start: 202012
  5. RITUXIMAB [Suspect]
     Active Substance: RITUXIMAB
     Dosage: R-GEMOX FOR 1 CYCLE
     Route: 065
     Dates: start: 202203
  6. OBINUTUZUMAB [Suspect]
     Active Substance: OBINUTUZUMAB
     Indication: Follicular lymphoma
     Dosage: FOR 2 CYCLE
     Route: 042
     Dates: start: 202204
  7. OBINUTUZUMAB [Suspect]
     Active Substance: OBINUTUZUMAB
     Dosage: FOR 1 CYCLE
     Route: 042
     Dates: start: 202206
  8. OBINUTUZUMAB [Suspect]
     Active Substance: OBINUTUZUMAB
     Dosage: FOR 1 CYCLE
     Route: 042
     Dates: start: 202207
  9. CYCLOPHOSPHAMIDE [Concomitant]
     Active Substance: CYCLOPHOSPHAMIDE
     Indication: Follicular lymphoma
     Dosage: R-CHOP FOR 6 CYCLES
     Dates: start: 201807
  10. CYCLOPHOSPHAMIDE [Concomitant]
     Active Substance: CYCLOPHOSPHAMIDE
     Dosage: R2-CHOP FOR 6 CYCLES
     Dates: start: 201909
  11. CYCLOPHOSPHAMIDE [Concomitant]
     Active Substance: CYCLOPHOSPHAMIDE
     Dosage: CEOP FOR1 CYCLE.
     Dates: start: 202207
  12. DOXORUBICIN [Concomitant]
     Active Substance: DOXORUBICIN
     Indication: Follicular lymphoma
     Dosage: R-CHOP FOR 6 CYCLES
     Dates: start: 201807
  13. DOXORUBICIN [Concomitant]
     Active Substance: DOXORUBICIN
     Dosage: R2-CHOP FOR 6 CYCLES
     Dates: start: 201809
  14. VINCRISTINE [Concomitant]
     Active Substance: VINCRISTINE
     Indication: Follicular lymphoma
     Dosage: R-CHOP FOR 6 CYCLES
     Dates: start: 201807
  15. VINCRISTINE [Concomitant]
     Active Substance: VINCRISTINE
     Dosage: R2-CHOP FOR 6 CYCLES
     Dates: start: 201909
  16. VINCRISTINE [Concomitant]
     Active Substance: VINCRISTINE
     Dosage: CEOP FOR 1 CYCLE.
     Dates: start: 202207
  17. PREDNISONE [Concomitant]
     Active Substance: PREDNISONE
     Indication: Follicular lymphoma
     Dosage: R-CHOP FOR 6 CYCLES
     Dates: start: 201807
  18. PREDNISONE [Concomitant]
     Active Substance: PREDNISONE
     Dosage: R2-CHOP FOR 6 CYCLES
     Dates: start: 201909
  19. PREDNISONE [Concomitant]
     Active Substance: PREDNISONE
     Dosage: CEOP FOR1 CYCLE.
     Dates: start: 202207
  20. LENALIDOMIDE [Concomitant]
     Active Substance: LENALIDOMIDE
     Indication: Follicular lymphoma
     Dosage: R2-CHOP FOR 6 CYCLES
     Dates: start: 201909
  21. BENDAMUSTINE [Concomitant]
     Active Substance: BENDAMUSTINE
     Indication: Follicular lymphoma
     Dosage: BR FOR 3 CYCLES
     Route: 065
  22. GEMCITABINE [Concomitant]
     Active Substance: GEMCITABINE
     Indication: Follicular lymphoma
     Dosage: 4-CYCLES R-GEMOX
     Dates: start: 202012
  23. GEMCITABINE [Concomitant]
     Active Substance: GEMCITABINE
     Dosage: R-GEMOX FOR 1 CYCLE
     Dates: start: 202203
  24. OXALIPLATIN [Concomitant]
     Active Substance: OXALIPLATIN
     Indication: Follicular lymphoma
     Dosage: 4-CYCLES R-GEMOX
     Dates: start: 202012
  25. OXALIPLATIN [Concomitant]
     Active Substance: OXALIPLATIN
     Dosage: R-GEMOX FOR 1 CYCLE
     Dates: start: 202203
  26. ZANUBRUTINIB [Concomitant]
     Active Substance: ZANUBRUTINIB
     Indication: Follicular lymphoma
     Dosage: TREATMENT WITH 4-CYCLES R-GEMOX,  FOR 1 YEAR
     Dates: start: 202012
  27. ZANUBRUTINIB [Concomitant]
     Active Substance: ZANUBRUTINIB
     Dosage: FOR 1 YEAR
     Dates: start: 202203
  28. ZANUBRUTINIB [Concomitant]
     Active Substance: ZANUBRUTINIB
     Dosage: R-GEMOX FOR 1 CYCLE
  29. ETOPOSIDE [Concomitant]
     Active Substance: ETOPOSIDE
     Indication: Follicular lymphoma
     Dosage: ESHAP FOR 2 CYCLES
     Dates: start: 202204
  30. ETOPOSIDE [Concomitant]
     Active Substance: ETOPOSIDE
     Dosage: CEOP FOR 1 CYCLE.
     Dates: start: 202207
  31. METHYLPREDNISOLONE [Concomitant]
     Active Substance: METHYLPREDNISOLONE
     Indication: Follicular lymphoma
     Dosage: ESHAP FOR 2 CYCLES.
     Dates: start: 202204
  32. CYTARABINE [Concomitant]
     Active Substance: CYTARABINE
     Indication: Follicular lymphoma
     Dosage: ESHAP FOR 2 CYCLES.
     Dates: start: 202204
  33. CYTARABINE [Concomitant]
     Active Substance: CYTARABINE
     Dosage: DHAP FOR 1 CYCLE.
     Dates: start: 202206
  34. CISPLATIN [Concomitant]
     Active Substance: CISPLATIN
     Indication: Follicular lymphoma
     Dosage: ESHAP FOR 2 CYCLES.
     Route: 065
     Dates: start: 202204
  35. CISPLATIN [Concomitant]
     Active Substance: CISPLATIN
     Dosage: DHAP FOR 1 CYCLE.
     Route: 065
     Dates: start: 202206
  36. UNSPECIFIED INGREDIENT [Concomitant]
     Active Substance: UNSPECIFIED INGREDIENT
     Dosage: ESHAP, 2 CYCLES.
     Dates: start: 202204
  37. DEXAMETHASONE [Concomitant]
     Active Substance: DEXAMETHASONE
     Dosage: DHAP, 1 CYCLE.
     Dates: start: 202206
  38. SELINEXOR [Concomitant]
     Active Substance: SELINEXOR
     Dosage: WITH G-CEOP, 1 CYCLE
     Dates: start: 202207
  39. VENETOCLAX [Concomitant]
     Active Substance: VENETOCLAX

REACTIONS (3)
  - Myelosuppression [Unknown]
  - Off label use [Unknown]
  - Drug ineffective [Unknown]
